FAERS Safety Report 7331906-1 (Version None)
Quarter: 2011Q1

REPORT INFORMATION
  Report Type: 
  Country: None (occurrence: None)
  Receive Date: 20110304
  Receipt Date: 20091125
  Transmission Date: 20110831
  Serious: No
  Sender: FDA-Public Use
  Company Number: US-PFIZER INC-2009271512

PATIENT
  Sex: Female
  Weight: 52.616 kg

DRUGS (8)
  1. DILANTIN [Suspect]
     Dosage: 100 MG, 3X/DAY
     Route: 048
  2. METOPROLOL [Concomitant]
     Dosage: UNK
  3. ISOSORBIDE [Concomitant]
     Dosage: UNK
  4. AMLODIPINE [Concomitant]
     Dosage: UNK
  5. LOVASTATIN [Concomitant]
     Dosage: UNK
  6. GABAPENTIN [Concomitant]
     Dosage: UNK
  7. LISINOPRIL [Concomitant]
     Dosage: UNK
  8. PLAVIX [Concomitant]
     Dosage: UNK

REACTIONS (1)
  - PAIN [None]
